FAERS Safety Report 5330966-7 (Version None)
Quarter: 2007Q2

REPORT INFORMATION
  Report Type: 
  Country: None (occurrence: None)
  Receive Date: 20070522
  Receipt Date: 20070511
  Transmission Date: 20071010
  Serious: Yes (Life-Threatening)
  Sender: FDA-Public Use
  Company Number: JP-ROCHE-488113

PATIENT
  Age: 88 Year
  Sex: Male
  Weight: 45 kg

DRUGS (10)
  1. TAMIFLU [Suspect]
     Dosage: REPORTED WAS:   NOTE: UNCERTAINTY.
     Route: 048
     Dates: start: 20070302, end: 20070309
  2. PL [Concomitant]
     Dosage: REPORTED WAS:   NOTE: UNCERTAINTY.
     Route: 048
     Dates: start: 20070302, end: 20070309
  3. LOXONIN [Concomitant]
     Dosage: DOSE FORM WAS REPORTED AS ORAL FORMULATION (NOT OTHERWISE SPECIFIED). REPORTED WAS:  NOTE: UNCERTAI+
     Route: 048
     Dates: start: 20070302, end: 20070309
  4. MARZULENE [Concomitant]
     Dosage: REPORTED WAS:   NOTE: UNCERTAINTY.
     Route: 048
     Dates: start: 20070302, end: 20070309
  5. ITOROL [Concomitant]
     Dosage: REPORTED WAS:   NOTE: UNCERTAINTY.
     Route: 048
  6. EBASTEL [Concomitant]
     Dosage: REPORTED WAS:   NOTE: UNCERTAINTY.
     Route: 048
  7. LAC-B [Concomitant]
     Dosage: REPORTED WAS:   NOTE: UNCERTAINTY.
     Route: 048
  8. BERIZYM [Concomitant]
     Dosage: REPORTED WAS:   NOTE: UNCERTAINTY.
     Route: 048
  9. FLUOROURACIL [Concomitant]
     Dosage: REPORTED WAS:   NOTE: UNCERTAINTY.
     Route: 048
  10. BUP-4 [Concomitant]
     Dosage: REPORTED WAS:   NOTE: UNCERTAINTY.
     Route: 048

REACTIONS (1)
  - PLATELET COUNT DECREASED [None]
